FAERS Safety Report 7219142-0 (Version None)
Quarter: 2011Q1

REPORT INFORMATION
  Report Type: 
  Country: None (occurrence: None)
  Receive Date: 20110111
  Receipt Date: 20101230
  Transmission Date: 20110831
  Serious: Yes (Other)
  Sender: FDA-Public Use
  Company Number: US-ELI_LILLY_AND_COMPANY-US201101000172

PATIENT
  Sex: Female

DRUGS (5)
  1. CARBAMAZEPINE [Concomitant]
  2. ZONISAMIDE [Concomitant]
  3. FORTEO [Suspect]
     Indication: OSTEOPOROSIS
     Dosage: 20 UG, DAILY (1/D)
     Dates: start: 20101202
  4. KEPPRA [Concomitant]
  5. CLONAZEPAM [Concomitant]

REACTIONS (1)
  - CONVULSION [None]
